FAERS Safety Report 9486518 (Version 2)
Quarter: 2013Q3

REPORT INFORMATION
  Report Type: Spontaneous
  Country: CO (occurrence: CO)
  Receive Date: 20130829
  Receipt Date: 20130930
  Transmission Date: 20140515
  Serious: Yes (Other)
  Sender: FDA-Public Use
  Company Number: CO-009507513-1308COL013809

PATIENT
  Age: 44 Year
  Sex: Female

DRUGS (6)
  1. PEG-INTRON [Suspect]
     Indication: HEPATITIS C
     Dosage: 100 MICROGRAM, QW, REDIPEN
     Route: 058
     Dates: start: 20130517
  2. REBETOL [Suspect]
     Indication: HEPATITIS C
     Dosage: 800MG DAILY
     Route: 048
     Dates: start: 20130517
  3. VICTRELIS [Suspect]
     Indication: HEPATITIS C
     Dosage: 2400MG DAILY
     Route: 048
     Dates: start: 20130517
  4. LAMOTRIGINE [Concomitant]
     Indication: EPILEPSY
     Dosage: UNK
  5. LEVETIRACETAM [Concomitant]
     Indication: EPILEPSY
     Dosage: UNK
  6. INSULIN [Concomitant]
     Dosage: UNK

REACTIONS (2)
  - Complex partial seizures [Recovered/Resolved]
  - Convulsion [Unknown]
